FAERS Safety Report 4636247-9 (Version None)
Quarter: 2005Q2

REPORT INFORMATION
  Report Type: 
  Country: None (occurrence: None)
  Receive Date: 20050415
  Receipt Date: 20031223
  Transmission Date: 20051028
  Serious: No
  Sender: FDA-Public Use
  Company Number: US-BRISTOL-MYERS SQUIBB COMPANY-12463998

PATIENT
  Age: 63 Year
  Sex: Female
  Weight: 50 kg

DRUGS (6)
  1. CARBOPLATIN [Suspect]
     Indication: OVARIAN CANCER
     Dosage: ADDITIONAL LOT #3H63628, EXPIRATION DATE: FEB-2005
     Route: 042
     Dates: start: 20031219, end: 20031219
  2. GEMZAR [Concomitant]
     Route: 042
  3. PEPCID [Concomitant]
     Route: 042
  4. DECADRON [Concomitant]
     Route: 042
  5. ANZEMET [Concomitant]
     Route: 042
  6. ATIVAN [Concomitant]
     Route: 042

REACTIONS (5)
  - DYSPEPSIA [None]
  - FLUSHING [None]
  - NAUSEA [None]
  - RASH ERYTHEMATOUS [None]
  - RETCHING [None]
